FAERS Safety Report 22181337 (Version 1)
Quarter: 2023Q2

REPORT INFORMATION
  Report Type: Report from Study
  Country: US (occurrence: US)
  Receive Date: 20230406
  Receipt Date: 20230406
  Transmission Date: 20230721
  Serious: Yes (Hospitalization)
  Sender: FDA-Public Use
  Company Number: US-ABBVIE-4717226

PATIENT
  Sex: Male
  Weight: 74.842 kg

DRUGS (5)
  1. MAVYRET [Suspect]
     Active Substance: GLECAPREVIR\PIBRENTASVIR
     Indication: Hepatitis C
     Dosage: 3 TABLET
     Route: 048
     Dates: start: 20230304
  2. TRAZODONE [Concomitant]
     Active Substance: TRAZODONE HYDROCHLORIDE
     Indication: Sleep disorder
  3. DULOXETINE [Concomitant]
     Active Substance: DULOXETINE
     Indication: Anxiety disorder
  4. LYRICA [Concomitant]
     Active Substance: PREGABALIN
     Indication: Compartment syndrome
  5. ABILIFY [Concomitant]
     Active Substance: ARIPIPRAZOLE
     Indication: Depression

REACTIONS (6)
  - Staphylococcal infection [Recovering/Resolving]
  - Hyperkeratosis [Recovering/Resolving]
  - Medical device implantation [Recovering/Resolving]
  - Skin haemorrhage [Recovering/Resolving]
  - Peripheral swelling [Recovering/Resolving]
  - Pain in extremity [Recovering/Resolving]
